FAERS Safety Report 8786650 (Version 2)
Quarter: 2015Q1

REPORT INFORMATION
  Report Type: Report from Study
  Country: US (occurrence: US)
  Receive Date: 20120914
  Receipt Date: 20150327
  Transmission Date: 20150721
  Serious: Yes (Death)
  Sender: FDA-Public Use
  Company Number: US-ROCHE-1126191

PATIENT
  Age: 51 Year
  Sex: Female

DRUGS (19)
  1. FENTANYL. [Concomitant]
     Active Substance: FENTANYL
  2. AVASTIN [Suspect]
     Active Substance: BEVACIZUMAB
     Indication: LUNG NEOPLASM MALIGNANT
     Route: 042
     Dates: start: 20061002
  3. GEMCITABINE [Concomitant]
     Active Substance: GEMCITABINE\GEMCITABINE HYDROCHLORIDE
  4. TAXOL [Concomitant]
     Active Substance: PACLITAXEL
  5. CARBOPLATIN. [Concomitant]
     Active Substance: CARBOPLATIN
  6. DURAGESIC [Concomitant]
     Active Substance: FENTANYL
     Route: 065
  7. REGLAN [Concomitant]
     Active Substance: METOCLOPRAMIDE HYDROCHLORIDE
  8. AVASTIN [Suspect]
     Active Substance: BEVACIZUMAB
     Route: 042
  9. AVASTIN [Suspect]
     Active Substance: BEVACIZUMAB
     Route: 042
  10. MORPHINE SULFATE. [Concomitant]
     Active Substance: MORPHINE SULFATE
  11. BENADRYL [Concomitant]
     Active Substance: DIPHENHYDRAMINE HYDROCHLORIDE
     Dosage: 25-50MG
     Route: 048
  12. AVASTIN [Suspect]
     Active Substance: BEVACIZUMAB
     Route: 042
  13. LORTAB (UNITED STATES) [Concomitant]
     Route: 065
  14. AVASTIN [Suspect]
     Active Substance: BEVACIZUMAB
     Route: 042
  15. PROTONIX (UNITED STATES) [Concomitant]
  16. ZOFRAN [Concomitant]
     Active Substance: ONDANSETRON HYDROCHLORIDE
  17. MAGNESIUM CITRATE. [Concomitant]
     Active Substance: MAGNESIUM CITRATE
  18. MEGACE ES [Concomitant]
     Active Substance: MEGESTROL ACETATE
  19. VINORELBINE [Concomitant]
     Active Substance: VINORELBINE\VINORELBINE TARTRATE

REACTIONS (21)
  - Asthenia [Unknown]
  - Nausea [Unknown]
  - Insomnia [Unknown]
  - Gastrooesophageal reflux disease [Unknown]
  - Disease progression [Unknown]
  - Back pain [Unknown]
  - Decreased appetite [Unknown]
  - Flatulence [Unknown]
  - Death [Fatal]
  - Chest pain [Unknown]
  - Emotional distress [Unknown]
  - Fatigue [Unknown]
  - Abdominal distension [Unknown]
  - Intervertebral disc protrusion [Unknown]
  - Dyspnoea [Unknown]
  - Depression [Unknown]
  - Abdominal pain upper [Unknown]
  - Anxiety [Unknown]
  - Pruritus generalised [Unknown]
  - Constipation [Unknown]
  - Gastritis [Unknown]

NARRATIVE: CASE EVENT DATE: 20080715
